FAERS Safety Report 15255956 (Version 2)
Quarter: 2021Q1

REPORT INFORMATION
  Report Type: Other
  Country: JP (occurrence: JP)
  Receive Date: 20180808
  Receipt Date: 20210126
  Transmission Date: 20210419
  Serious: Yes (Hospitalization, Other)
  Sender: FDA-Public Use
  Company Number: JP-ROCHE-2164397

PATIENT
  Age: 74 Year
  Sex: Female

DRUGS (16)
  1. RITUXIMAB. [Suspect]
     Active Substance: RITUXIMAB
     Route: 065
     Dates: start: 201701
  2. DENOSINE (JAPAN) [Suspect]
     Active Substance: GANCICLOVIR
     Indication: CYTOMEGALOVIRUS CHORIORETINITIS
     Route: 042
     Dates: start: 20170201, end: 20170208
  3. BENDAMUSTINE HYDROCHLORIDE. [Suspect]
     Active Substance: BENDAMUSTINE HYDROCHLORIDE
     Indication: B-CELL LYMPHOMA
     Dosage: 6 CYCLES
     Route: 042
     Dates: start: 201305
  4. DOXORUBICIN HYDROCHLORIDE. [Concomitant]
     Active Substance: DOXORUBICIN HYDROCHLORIDE
     Indication: B-CELL LYMPHOMA
  5. BENDAMUSTINE HYDROCHLORIDE. [Suspect]
     Active Substance: BENDAMUSTINE HYDROCHLORIDE
     Dosage: UNKNOWN DOSE CYCLIC, 3RD CYCLE
     Route: 042
     Dates: start: 201608
  6. BENDAMUSTINE HYDROCHLORIDE. [Suspect]
     Active Substance: BENDAMUSTINE HYDROCHLORIDE
     Dosage: UNKNOWN DOSE CYCLIC, 2ND CYCLE
     Route: 042
     Dates: start: 201607
  7. CYCLOPHOSPHAMIDE. [Concomitant]
     Active Substance: CYCLOPHOSPHAMIDE
     Indication: B-CELL LYMPHOMA
  8. RITUXIMAB. [Suspect]
     Active Substance: RITUXIMAB
     Indication: B-CELL LYMPHOMA
     Route: 065
     Dates: start: 201305
  9. RITUXIMAB. [Suspect]
     Active Substance: RITUXIMAB
     Route: 065
     Dates: start: 201606
  10. RITUXIMAB. [Suspect]
     Active Substance: RITUXIMAB
     Route: 065
     Dates: start: 201607
  11. BENDAMUSTINE HYDROCHLORIDE. [Suspect]
     Active Substance: BENDAMUSTINE HYDROCHLORIDE
     Dosage: UNKNOWN DOSE CYCLIC, 4TH CYCLE
     Route: 042
     Dates: start: 201701
  12. PREDNISOLONE. [Concomitant]
     Active Substance: PREDNISOLONE
     Indication: B-CELL LYMPHOMA
  13. VALACICLOVIR [Suspect]
     Active Substance: VALACYCLOVIR HYDROCHLORIDE
     Indication: PRODUCT USED FOR UNKNOWN INDICATION
     Route: 065
  14. BENDAMUSTINE HYDROCHLORIDE. [Suspect]
     Active Substance: BENDAMUSTINE HYDROCHLORIDE
     Dosage: 1ST CYCLE
     Route: 042
     Dates: start: 201606
  15. RITUXIMAB. [Suspect]
     Active Substance: RITUXIMAB
     Route: 065
     Dates: start: 201608
  16. VINCRISTINE [Concomitant]
     Active Substance: VINCRISTINE
     Indication: B-CELL LYMPHOMA

REACTIONS (2)
  - Cytomegalovirus chorioretinitis [Recovered/Resolved]
  - Liver disorder [Recovering/Resolving]

NARRATIVE: CASE EVENT DATE: 20170101
